FAERS Safety Report 16084169 (Version 7)
Quarter: 2022Q2

REPORT INFORMATION
  Report Type: Spontaneous
  Country: US (occurrence: US)
  Receive Date: 20190318
  Receipt Date: 20220419
  Transmission Date: 20220721
  Serious: No
  Sender: FDA-Public Use
  Company Number: US-PFIZER INC-2019111282

PATIENT
  Age: 68 Year
  Sex: Female
  Weight: 52.62 kg

DRUGS (2)
  1. CELEBREX [Suspect]
     Active Substance: CELECOXIB
     Indication: Arthritis
     Dosage: 200 MG, 2X/DAY
     Route: 048
     Dates: end: 201812
  2. CELEBREX [Suspect]
     Active Substance: CELECOXIB
     Dosage: 200 MG, 2X/DAY

REACTIONS (8)
  - Product dispensing error [Unknown]
  - Intentional product use issue [Unknown]
  - Pain in extremity [Unknown]
  - Limb discomfort [Unknown]
  - Illness [Unknown]
  - Fatigue [Unknown]
  - Dysstasia [Unknown]
  - Pain [Unknown]

NARRATIVE: CASE EVENT DATE: 20190101
